FAERS Safety Report 9195206 (Version 1)
Quarter: 2013Q1

REPORT INFORMATION
  Report Type: Spontaneous
  Country: US (occurrence: US)
  Receive Date: 20130328
  Receipt Date: 20130328
  Transmission Date: 20140127
  Serious: No
  Sender: FDA-Public Use
  Company Number: US-ALLERGAN-1300638US

PATIENT
  Age: 62 Year
  Sex: Female

DRUGS (4)
  1. LATISSE 0.03% [Suspect]
     Indication: GROWTH OF EYELASHES
     Dosage: 2 GTT, QHS
     Route: 061
  2. VITAMIN B                          /00056102/ [Concomitant]
     Indication: ALOPECIA
  3. VITAMIN D /00107901/ [Concomitant]
     Indication: ALOPECIA
  4. ZOCOR [Concomitant]
     Indication: PRODUCT USED FOR UNKNOWN INDICATION
     Dosage: UNK UNK, QOD

REACTIONS (3)
  - Wrong technique in drug usage process [Unknown]
  - Drug ineffective [Unknown]
  - Hair growth abnormal [Unknown]
